FAERS Safety Report 13201865 (Version 3)
Quarter: 2017Q1

REPORT INFORMATION
  Report Type: Spontaneous
  Country: US (occurrence: US)
  Receive Date: 20170209
  Receipt Date: 20170324
  Transmission Date: 20170428
  Serious: Yes (Other)
  Sender: FDA-Public Use
  Company Number: US-SUN PHARMACEUTICAL INDUSTRIES LTD-2017US-132660

PATIENT
  Age: 17 Year
  Sex: Male

DRUGS (2)
  1. ABSORICA [Suspect]
     Active Substance: ISOTRETINOIN
     Indication: ACNE
     Dosage: 35 MG, BID
     Route: 065
     Dates: start: 201702, end: 20170303
  2. ABSORICA [Suspect]
     Active Substance: ISOTRETINOIN
     Indication: ACNE
     Dosage: 35 MG, BID
     Route: 065
     Dates: start: 20170109, end: 201702

REACTIONS (6)
  - Influenza like illness [Unknown]
  - Pharyngitis streptococcal [Unknown]
  - Headache [Unknown]
  - Drug dispensing error [Recovered/Resolved]
  - Rhinorrhoea [Unknown]
  - Expired product administered [Recovered/Resolved]

NARRATIVE: CASE EVENT DATE: 201701
